FAERS Safety Report 18024547 (Version 1)
Quarter: 2020Q3

REPORT INFORMATION
  Report Type: Spontaneous
  Country: US (occurrence: US)
  Receive Date: 20200714
  Receipt Date: 20200714
  Transmission Date: 20201103
  Serious: No
  Sender: FDA-Public Use
  Company Number: None

PATIENT
  Sex: Female

DRUGS (4)
  1. OCTREOTIDE 50 1ML PF SYR 50MCG/ML MYLAN INSTITUTIONAL [Suspect]
     Active Substance: OCTREOTIDE
     Indication: GASTROINTESTINAL VASCULAR MALFORMATION HAEMORRHAGIC
     Route: 030
     Dates: start: 20200702
  2. OCTREOTIDE 50 1ML PF SYR 50MCG/ML MYLAN INSTITUTIONAL [Suspect]
     Active Substance: OCTREOTIDE
     Indication: PRIMARY BILIARY CHOLANGITIS
     Route: 030
     Dates: start: 20200702
  3. OCTREOTIDE 50 1ML PF SYR 50MCG/ML MYLAN INSTITUTIONAL [Suspect]
     Active Substance: OCTREOTIDE
     Indication: GASTROINTESTINAL ANGIODYSPLASIA
     Route: 030
     Dates: start: 20200702
  4. OCTREOTIDE 50 1ML PF SYR 50MCG/ML MYLAN INSTITUTIONAL [Suspect]
     Active Substance: OCTREOTIDE
     Indication: GASTRITIS HAEMORRHAGIC
     Route: 030
     Dates: start: 20200702

REACTIONS (3)
  - Pain [None]
  - Device issue [None]
  - Contusion [None]
